FAERS Safety Report 6979947-8 (Version None)
Quarter: 2010Q3

REPORT INFORMATION
  Report Type: 
  Country: None (occurrence: None)
  Receive Date: 20100909
  Receipt Date: 20100826
  Transmission Date: 20110219
  Serious: Yes (Hospitalization)
  Sender: FDA-Public Use
  Company Number: 2010MA002038

PATIENT
  Age: 79 Year
  Sex: Male

DRUGS (12)
  1. HYDROCHLOROTHIAZIDE [Suspect]
     Indication: BLOOD PRESSURE INCREASED
     Dosage: 25 MG
  2. OXCARBAZEPINE [Suspect]
  3. SULPIRIDE [Concomitant]
  4. TETRAZEPAM [Concomitant]
  5. OMEPRAZOLE [Concomitant]
  6. TIOTROPIUM [Concomitant]
  7. BROMIDE [Concomitant]
  8. BUDESONIDE [Concomitant]
  9. FORMOTEROL FUMARATE [Concomitant]
  10. DEXTROPROPHENE [Concomitant]
  11. ENALAPRIL MALEATE [Concomitant]
  12. DEFLAZACORT [Concomitant]

REACTIONS (7)
  - ASTHENIA [None]
  - CONFUSIONAL STATE [None]
  - DIZZINESS [None]
  - GAIT DISTURBANCE [None]
  - INAPPROPRIATE ANTIDIURETIC HORMONE SECRETION [None]
  - STUPOR [None]
  - VOMITING [None]
